FAERS Safety Report 5219927-6 (Version None)
Quarter: 2007Q1

REPORT INFORMATION
  Report Type: 
  Country: None (occurrence: None)
  Receive Date: 20070124
  Receipt Date: 20070124
  Transmission Date: 20070707
  Serious: Yes (Other)
  Sender: FDA-Public Use
  Company Number: None

PATIENT
  Age: 68 Year
  Sex: Male
  Weight: 75.8 kg

DRUGS (5)
  1. AGGRENOX [Suspect]
  2. LISINOPRIL [Concomitant]
  3. ROSUVASTATIN CA [Concomitant]
  4. METOPROLOL SUCCINATE [Concomitant]
  5. OMEPRAZOLE [Concomitant]

REACTIONS (1)
  - HEADACHE [None]
